FAERS Safety Report 6906445-X (Version None)
Quarter: 2010Q3

REPORT INFORMATION
  Report Type: 
  Country: None (occurrence: None)
  Receive Date: 20100804
  Receipt Date: 20100728
  Transmission Date: 20110219
  Serious: Yes (Other)
  Sender: FDA-Public Use
  Company Number: B0668293A

PATIENT
  Sex: Male

DRUGS (1)
  1. AUGMENTIN ES-600 [Suspect]
     Indication: PRODUCT USED FOR UNKNOWN INDICATION
     Route: 048
     Dates: start: 20081101

REACTIONS (3)
  - PRURITUS [None]
  - RASH [None]
  - RASH PAPULAR [None]
